FAERS Safety Report 5669342-6 (Version None)
Quarter: 2008Q1

REPORT INFORMATION
  Report Type: 
  Country: None (occurrence: None)
  Receive Date: 20080311
  Receipt Date: 20080311
  Transmission Date: 20080703
  Serious: Yes (Hospitalization)
  Sender: FDA-Public Use
  Company Number: None

PATIENT
  Sex: Female

DRUGS (6)
  1. TEMOZOLOMIDE [Suspect]
     Indication: ACUTE MYELOID LEUKAEMIA
  2. CEFEPIME [Concomitant]
  3. VANCOMYCIN HCL [Concomitant]
  4. CIPRO [Concomitant]
  5. K [Concomitant]
  6. MG [Concomitant]

REACTIONS (3)
  - DIARRHOEA [None]
  - PNEUMONIA [None]
  - RESPIRATORY DISTRESS [None]
